FAERS Safety Report 14254698 (Version 2)
Quarter: 2017Q4

REPORT INFORMATION
  Report Type: Spontaneous
  Country: US (occurrence: US)
  Receive Date: 20171206
  Receipt Date: 20171229
  Transmission Date: 20180321
  Serious: Yes (Hospitalization, Other)
  Sender: FDA-Public Use
  Company Number: US-SUN PHARMACEUTICAL INDUSTRIES LTD-2017US-156361

PATIENT
  Sex: Female
  Weight: 2.65 kg

DRUGS (4)
  1. SOTALOL. [Suspect]
     Active Substance: SOTALOL
     Indication: JUNCTIONAL ECTOPIC TACHYCARDIA
     Dosage: MAXIMUM DOSE 480 MG/DAY
     Route: 064
  2. AMIODARONE [Suspect]
     Active Substance: AMIODARONE
     Dosage: 300 MG, BID
     Route: 064
  3. AMIODARONE [Suspect]
     Active Substance: AMIODARONE
     Indication: JUNCTIONAL ECTOPIC TACHYCARDIA
     Dosage: EVERY 8 HOURS X 24 HOURS
     Route: 064
  4. DIGOXIN. [Concomitant]
     Active Substance: DIGOXIN
     Indication: JUNCTIONAL ECTOPIC TACHYCARDIA
     Dosage: UNK
     Route: 064

REACTIONS (4)
  - Pulmonary hypertension [Recovered/Resolved]
  - Foetal exposure during pregnancy [Unknown]
  - Bundle branch block left [Recovered/Resolved]
  - Electrocardiogram QRS complex prolonged [Recovered/Resolved]
